FAERS Safety Report 17251559 (Version 1)
Quarter: 2020Q1

REPORT INFORMATION
  Report Type: Spontaneous
  Country: US (occurrence: US)
  Receive Date: 20200109
  Receipt Date: 20200109
  Transmission Date: 20200409
  Serious: Yes (Hospitalization)
  Sender: FDA-Public Use
  Company Number: US-SA-2020SA006031

PATIENT
  Sex: Male

DRUGS (1)
  1. DUPIXENT [Suspect]
     Active Substance: DUPILUMAB
     Dosage: UNK
     Dates: start: 20191216, end: 20191216

REACTIONS (3)
  - Swelling [Unknown]
  - Gait inability [Unknown]
  - Blister rupture [Unknown]

NARRATIVE: CASE EVENT DATE: 201912
